FAERS Safety Report 9709751 (Version 1)
Quarter: 2013Q4

REPORT INFORMATION
  Report Type: Spontaneous
  Country: US (occurrence: US)
  Receive Date: 20131126
  Receipt Date: 20131126
  Transmission Date: 20140711
  Serious: Yes (Death, Hospitalization)
  Sender: FDA-Public Use
  Company Number: US-ROCHE-1306895

PATIENT
  Age: 91 Year
  Sex: Female

DRUGS (4)
  1. LUCENTIS [Suspect]
     Indication: MACULAR DEGENERATION
     Dosage: PROBABLY 8 YEARS, RIGHT EYE
     Route: 065
  2. LUCENTIS [Suspect]
     Route: 065
     Dates: start: 20100510
  3. LUCENTIS [Suspect]
     Route: 065
     Dates: start: 20100609
  4. LUCENTIS [Suspect]
     Route: 065
     Dates: start: 20100412

REACTIONS (2)
  - Hodgkin^s disease recurrent [Fatal]
  - Cardiac pacemaker insertion [Unknown]
